FAERS Safety Report 23461857 (Version 2)
Quarter: 2024Q1

REPORT INFORMATION
  Report Type: Report from Study
  Country: CA (occurrence: CA)
  Receive Date: 20240131
  Receipt Date: 20240218
  Transmission Date: 20240410
  Serious: Yes (Life-Threatening, Other)
  Sender: FDA-Public Use
  Company Number: CA-SAMSUNG BIOEPIS-SB-2024-03192

PATIENT
  Age: 31 Year
  Sex: Male

DRUGS (1)
  1. RENFLEXIS [Suspect]
     Active Substance: INFLIXIMAB-ABDA
     Indication: Uveitis
     Dosage: VIAL
     Route: 065
     Dates: start: 20231228

REACTIONS (5)
  - Chest pain [Unknown]
  - Dyspnoea [Unknown]
  - Pruritus [Unknown]
  - Anaphylactic reaction [Unknown]
  - Product use in unapproved indication [Unknown]

NARRATIVE: CASE EVENT DATE: 20240125
